FAERS Safety Report 5977732-7 (Version None)
Quarter: 2008Q4

REPORT INFORMATION
  Report Type: 
  Country: None (occurrence: None)
  Receive Date: 20081202
  Receipt Date: 20081202
  Transmission Date: 20090506
  Serious: Yes (Hospitalization)
  Sender: FDA-Public Use
  Company Number: None

PATIENT
  Age: 60 Year
  Sex: Female
  Weight: 104.3273 kg

DRUGS (1)
  1. BENICAR HCT [Suspect]
     Indication: BLOOD PRESSURE
     Dosage: 40/25 1 DAILY PO
     Route: 048
     Dates: start: 20081103, end: 20081124

REACTIONS (9)
  - ASTHENIA [None]
  - CHEST PAIN [None]
  - DIZZINESS [None]
  - DYSPNOEA [None]
  - NAUSEA [None]
  - NERVOUSNESS [None]
  - PAIN IN EXTREMITY [None]
  - RASH [None]
  - VISION BLURRED [None]
